FAERS Safety Report 10495284 (Version 1)
Quarter: 2014Q4

REPORT INFORMATION
  Report Type: Spontaneous
  Country: US (occurrence: None)
  Receive Date: 20141001
  Receipt Date: 20141001
  Transmission Date: 20150528
  Serious: Yes (Other)
  Sender: FDA-Public Use
  Company Number: VAL_03446_2014

PATIENT
  Age: 15 Year
  Sex: Male

DRUGS (13)
  1. HYDROCORTISONE. [Concomitant]
     Active Substance: HYDROCORTISONE
  2. SEROQUEL (UNKNOWN) [Concomitant]
  3. NASOCORT (UNKNOWN) [Concomitant]
  4. CONCERTA (UNKNOWN) [Concomitant]
  5. NUTROPIN AQ [Suspect]
     Active Substance: SOMATROPIN
     Indication: ADRENAL INSUFFICIENCY
     Dosage: (1.7 MG QD SUBCUTANEOUS)
     Route: 058
     Dates: start: 201007
  6. PULMOZYME [Suspect]
     Active Substance: DORNASE ALFA
     Indication: PRODUCT USED FOR UNKNOWN INDICATION
     Dosage: (DF)
  7. CALCIUM VITAMIN D (UNKNOWN) [Concomitant]
  8. SYMBICORT (UNKNOWN) [Concomitant]
  9. PAXIL (UNKNOWN) [Concomitant]
  10. TESTOSTERONE (UNKNOWN UNTIL NOT CONTINUING) [Concomitant]
  11. DEXAMETHASONE (UNKNOWN) [Concomitant]
     Active Substance: DEXAMETHASONE
  12. CALCITRIOL. [Suspect]
     Active Substance: CALCITRIOL
     Indication: OSTEOPENIA
     Route: 048
  13. ASMANEX (UNKNOWN) [Concomitant]

REACTIONS (7)
  - Blood glucose decreased [None]
  - Arthralgia [None]
  - Growth retardation [None]
  - Headache [None]
  - Vitamin D deficiency [None]
  - Tachycardia [None]
  - Wheelchair user [None]

NARRATIVE: CASE EVENT DATE: 20110626
